FAERS Safety Report 10701883 (Version 2)
Quarter: 2015Q1

REPORT INFORMATION
  Report Type: Spontaneous
  Country: BR (occurrence: BR)
  Receive Date: 20150109
  Receipt Date: 20150204
  Transmission Date: 20150721
  Serious: Yes (Other)
  Sender: FDA-Public Use
  Company Number: CHPA2014BR017264

PATIENT
  Sex: Female
  Weight: 59 kg

DRUGS (2)
  1. OTRIVINA [Suspect]
     Active Substance: XYLOMETAZOLINE
     Indication: SINUSITIS
     Dosage: UNK, QN
     Route: 045
  2. PANTOPRAZOLE [Concomitant]
     Active Substance: PANTOPRAZOLE SODIUM
     Indication: GASTRITIS
     Dosage: 1 DF, QD
     Route: 048

REACTIONS (5)
  - Gastritis [Recovered/Resolved]
  - Femur fracture [Recovering/Resolving]
  - Nasal congestion [Not Recovered/Not Resolved]
  - Gait disturbance [Recovering/Resolving]
  - Fall [Recovering/Resolving]
